FAERS Safety Report 8493041-9 (Version None)
Quarter: 2012Q3

REPORT INFORMATION
  Report Type: 
  Country: None (occurrence: None)
  Receive Date: 20120706
  Receipt Date: 20120703
  Transmission Date: 20120928
  Serious: Yes (Death, Hospitalization)
  Sender: FDA-Public Use
  Company Number: US-B.I. PHARMACEUTICALS,INC./RIDGEFIELD-2011-BP-14326BP

PATIENT
  Sex: Female

DRUGS (10)
  1. CRESTOR [Concomitant]
     Dosage: 40 MG
     Route: 048
     Dates: end: 20110524
  2. ASPIRIN [Concomitant]
     Dosage: 81 MG
     Route: 048
     Dates: end: 20110524
  3. COREG [Concomitant]
     Dosage: 6.25 MG
     Route: 048
  4. NEXIUM [Concomitant]
     Dosage: 40 MG
     Route: 048
  5. REGLAN [Concomitant]
     Dosage: 5 MG
     Route: 048
  6. PRADAXA [Suspect]
     Indication: ATRIAL FIBRILLATION
     Dosage: 300 MG
     Route: 048
     Dates: start: 20110119, end: 20110524
  7. LISINOPRIL [Concomitant]
     Dosage: 40 MG
     Route: 048
  8. MACROBID [Concomitant]
     Dosage: 100 MG
     Route: 048
     Dates: end: 20110524
  9. LASIX [Concomitant]
     Dosage: 80 MG
     Route: 048
     Dates: end: 20110524
  10. JANUVIA [Concomitant]
     Dosage: 100 MG
     Route: 048
     Dates: end: 20110524

REACTIONS (10)
  - PYELONEPHRITIS ACUTE [None]
  - RENAL TUBULAR NECROSIS [None]
  - CELLULITIS [None]
  - PROTHROMBIN TIME PROLONGED [None]
  - COAGULOPATHY [None]
  - SEPTIC SHOCK [None]
  - MALNUTRITION [None]
  - URAEMIC ENCEPHALOPATHY [None]
  - HAEMORRHAGIC ANAEMIA [None]
  - DISSEMINATED INTRAVASCULAR COAGULATION [None]
